FAERS Safety Report 6788548-6 (Version None)
Quarter: 2010Q2

REPORT INFORMATION
  Report Type: 
  Country: None (occurrence: None)
  Receive Date: 20100623
  Receipt Date: 20080327
  Transmission Date: 20101027
  Serious: Yes (Other)
  Sender: FDA-Public Use
  Company Number: US-PFIZER INC-2008027861

PATIENT
  Sex: Female
  Weight: 63.636 kg

DRUGS (4)
  1. CADUET [Suspect]
     Indication: HYPERTENSION
     Dates: start: 20040101
  2. LISINOPRIL [Concomitant]
     Dates: start: 20040101
  3. LOPRESSOR [Concomitant]
     Dates: start: 20040101
  4. METOPROLOL TARTRATE [Concomitant]
     Dates: start: 20040101

REACTIONS (3)
  - BLISTER [None]
  - NAIL GROWTH ABNORMAL [None]
  - OEDEMA PERIPHERAL [None]
